FAERS Safety Report 12297884 (Version 2)
Quarter: 2016Q2

REPORT INFORMATION
  Report Type: Spontaneous
  Country: TR (occurrence: TR)
  Receive Date: 20160422
  Receipt Date: 20160502
  Transmission Date: 20160815
  Serious: Yes (Hospitalization)
  Sender: FDA-Public Use
  Company Number: TR-PFIZER INC-2016223368

PATIENT
  Age: 33 Year
  Sex: Male
  Weight: 54 kg

DRUGS (4)
  1. LYRICA [Suspect]
     Active Substance: PREGABALIN
     Dosage: 13 CAPSULES OF LYRICA 75 MG
  2. LIORESAL [Suspect]
     Active Substance: BACLOFEN
     Dosage: 40 TABLETS OF 10 MG
  3. PANREF [Suspect]
     Active Substance: PANTOPRAZOLE SODIUM
     Dosage: 11 TABLETS OF 40 MG
  4. SELECTRA /01011402/ [Suspect]
     Active Substance: SERTRALINE HYDROCHLORIDE
     Dosage: 13 TABLETS OF 50 MG

REACTIONS (2)
  - Intentional overdose [Recovered/Resolved]
  - Suicide attempt [Recovered/Resolved]

NARRATIVE: CASE EVENT DATE: 20160319
